FAERS Safety Report 9599695 (Version 1)
Quarter: 2013Q4

REPORT INFORMATION
  Report Type: Spontaneous
  Country: US (occurrence: US)
  Receive Date: 20131004
  Receipt Date: 20131004
  Transmission Date: 20140711
  Serious: No
  Sender: FDA-Public Use
  Company Number: US-AMGEN-USASP2013030967

PATIENT
  Age: 54 Year
  Sex: Female
  Weight: 55.78 kg

DRUGS (6)
  1. ENBREL [Suspect]
     Indication: PRODUCT USED FOR UNKNOWN INDICATION
     Dosage: 50 MG, QWK
     Route: 058
  2. FOLIC ACID [Concomitant]
     Dosage: UNK
  3. CALCIUM D                          /00944201/ [Concomitant]
     Dosage: UNK
  4. MULTIVITAMINS, PLAIN [Concomitant]
     Dosage: UNK
  5. FOSAMAX [Concomitant]
     Dosage: 70 MG, UNK
  6. PREDNISONE [Concomitant]
     Dosage: 1 MG, UNK

REACTIONS (1)
  - Drug ineffective [Unknown]
